FAERS Safety Report 7102619-6 (Version None)
Quarter: 2010Q4

REPORT INFORMATION
  Report Type: 
  Country: None (occurrence: None)
  Receive Date: 20101115
  Receipt Date: 20101105
  Transmission Date: 20110411
  Serious: Yes (Death, Life-Threatening, Hospitalization)
  Sender: FDA-Public Use
  Company Number: B0681923A

PATIENT
  Sex: Male
  Weight: 107 kg

DRUGS (12)
  1. MELPHALAN HYDROCHLORIDE [Suspect]
     Indication: MULTIPLE MYELOMA
     Route: 065
     Dates: start: 20100720, end: 20101017
  2. THALIDOMIDE [Suspect]
     Indication: MULTIPLE MYELOMA
     Route: 048
     Dates: start: 20100720, end: 20101017
  3. PREDNISOLONE [Suspect]
     Indication: MULTIPLE MYELOMA
     Route: 065
     Dates: start: 20100720, end: 20101017
  4. ALLOPURINOL [Concomitant]
  5. ASPIRIN [Concomitant]
  6. OMEPRAZOLE [Concomitant]
  7. PANADOL [Concomitant]
  8. CODEINE SUL TAB [Concomitant]
  9. CLEXANE [Concomitant]
  10. DIAZEPAM [Concomitant]
  11. TRAMADOL HCL [Concomitant]
  12. SODIUM CHLORIDE [Concomitant]

REACTIONS (16)
  - BACTERIAL INFECTION [None]
  - CELLULITIS [None]
  - CONFUSIONAL STATE [None]
  - CONSTIPATION [None]
  - DECREASED APPETITE [None]
  - DEHYDRATION [None]
  - DEPRESSED LEVEL OF CONSCIOUSNESS [None]
  - FATIGUE [None]
  - FEBRILE NEUTROPENIA [None]
  - LETHARGY [None]
  - NEUTROPENIC SEPSIS [None]
  - PYREXIA [None]
  - SEPTIC SHOCK [None]
  - SOMNOLENCE [None]
  - TACHYPNOEA [None]
  - URINARY INCONTINENCE [None]
